FAERS Safety Report 20852258 (Version 3)
Quarter: 2022Q2

REPORT INFORMATION
  Report Type: Spontaneous
  Country: US (occurrence: US)
  Receive Date: 20220520
  Receipt Date: 20220525
  Transmission Date: 20220721
  Serious: Yes (Other)
  Sender: FDA-Public Use
  Company Number: US-GLAXOSMITHKLINE-US2022AMR079544

PATIENT

DRUGS (1)
  1. BENLYSTA [Suspect]
     Active Substance: BELIMUMAB
     Indication: Systemic lupus erythematosus
     Dosage: 200 MG, WE
     Dates: start: 202111

REACTIONS (7)
  - Neuropathy peripheral [Unknown]
  - Systemic lupus erythematosus [Unknown]
  - Pain [Unknown]
  - Pain in extremity [Unknown]
  - Arthritis [Unknown]
  - Product storage error [Unknown]
  - Product dose omission issue [Unknown]
